FAERS Safety Report 7582861-0 (Version None)
Quarter: 2011Q2

REPORT INFORMATION
  Report Type: 
  Country: None (occurrence: None)
  Receive Date: 20110627
  Receipt Date: 20110627
  Transmission Date: 20111010
  Serious: Yes (Other)
  Sender: FDA-Public Use
  Company Number: None

PATIENT
  Age: 40 Year
  Sex: Female
  Weight: 58.0604 kg

DRUGS (1)
  1. MACROBID [Suspect]
     Indication: URINARY TRACT INFECTION
     Dosage: 1 CAPLET 2X DAY
     Dates: start: 20110622, end: 20110623

REACTIONS (9)
  - NAUSEA [None]
  - CHILLS [None]
  - COLD SWEAT [None]
  - PYREXIA [None]
  - MALAISE [None]
  - PAIN [None]
  - CRYING [None]
  - HYPERHIDROSIS [None]
  - COUGH [None]
